FAERS Safety Report 24154445 (Version 1)
Quarter: 2024Q3

REPORT INFORMATION
  Report Type: Report from Study
  Country: US (occurrence: US)
  Receive Date: 20240731
  Receipt Date: 20240731
  Transmission Date: 20241017
  Serious: Yes (Disabling)
  Sender: ABBVIE
  Company Number: US-ABBVIE-5819302

PATIENT
  Age: 46 Year
  Sex: Female

DRUGS (1)
  1. HUMIRA [Suspect]
     Active Substance: ADALIMUMAB
     Indication: Rheumatoid arthritis
     Dosage: CITRATE FREE, FORM STRENGTH 40 MG
     Route: 058
     Dates: start: 20060307

REACTIONS (9)
  - Musculoskeletal disorder [Unknown]
  - Intervertebral disc degeneration [Unknown]
  - Movement disorder [Unknown]
  - Pain [Unknown]
  - Fall [Unknown]
  - Drug ineffective [Unknown]
  - Pain in extremity [Unknown]
  - Hand deformity [Unknown]
  - Arthralgia [Recovering/Resolving]

NARRATIVE: CASE EVENT DATE: 20231201
